FAERS Safety Report 14911888 (Version 1)
Quarter: 2018Q2

REPORT INFORMATION
  Report Type: Spontaneous
  Country: FR (occurrence: FR)
  Receive Date: 20180518
  Receipt Date: 20180518
  Transmission Date: 20180711
  Serious: Yes (Other)
  Sender: FDA-Public Use
  Company Number: FR-MERCK KGAA-2048040

PATIENT
  Age: 50 Year
  Sex: Female

DRUGS (1)
  1. NOVOTHYROX [Suspect]
     Active Substance: LEVOTHYROXINE SODIUM
     Indication: PRODUCT USED FOR UNKNOWN INDICATION

REACTIONS (29)
  - Nervousness [None]
  - Gait disturbance [None]
  - Psychiatric symptom [None]
  - Aggression [None]
  - Blood pressure increased [None]
  - Choking sensation [None]
  - Weight increased [None]
  - Nausea [None]
  - Social avoidant behaviour [None]
  - Asthenia [None]
  - Blood thyroid stimulating hormone decreased [Recovering/Resolving]
  - Hot flush [None]
  - Alopecia [None]
  - Poor quality sleep [None]
  - Insomnia [None]
  - Fall [None]
  - Irritability [None]
  - Blood glucose increased [Recovering/Resolving]
  - Fatigue [None]
  - Blood triglycerides increased [None]
  - Memory impairment [None]
  - Limb discomfort [None]
  - Feeling hot [None]
  - Pruritus [None]
  - Disturbance in attention [None]
  - Vertigo [None]
  - Dyspnoea [None]
  - Headache [None]
  - Fear of falling [None]

NARRATIVE: CASE EVENT DATE: 20170217
